FAERS Safety Report 13545827 (Version 1)
Quarter: 2017Q2

REPORT INFORMATION
  Report Type: Spontaneous
  Country: US (occurrence: US)
  Receive Date: 20170515
  Receipt Date: 20170515
  Transmission Date: 20170830
  Serious: Yes (Other)
  Sender: FDA-Public Use
  Company Number: US-BRISTOL-MYERS SQUIBB COMPANY-BMS-2017-038965

PATIENT
  Sex: Female

DRUGS (1)
  1. WARFARIN SODIUM. [Suspect]
     Active Substance: WARFARIN SODIUM
     Indication: ANTIPHOSPHOLIPID SYNDROME
     Dosage: UNK
     Route: 048
     Dates: start: 1986

REACTIONS (6)
  - Pulmonary embolism [Unknown]
  - Dizziness [Unknown]
  - Cough [Unknown]
  - Fatigue [Unknown]
  - International normalised ratio decreased [Unknown]
  - Product use in unapproved indication [Unknown]
